FAERS Safety Report 25013447 (Version 1)
Quarter: 2025Q1

REPORT INFORMATION
  Report Type: Spontaneous
  Country: US (occurrence: US)
  Receive Date: 20250226
  Receipt Date: 20250226
  Transmission Date: 20250409
  Serious: No
  Sender: UCB
  Company Number: US-UCBSA-2024034362

PATIENT
  Age: 30 Year
  Sex: Female

DRUGS (21)
  1. LEVETIRACETAM [Suspect]
     Active Substance: LEVETIRACETAM
     Indication: Status epilepticus
     Dosage: 2500 MILLIGRAM, 2X/DAY (BID) (MAXIMUM OF 2500 MG B.I.D.)
  2. LEVETIRACETAM [Suspect]
     Active Substance: LEVETIRACETAM
     Indication: Off label use
  3. MIDAZOLAM [Suspect]
     Active Substance: MIDAZOLAM
     Indication: Seizure
  4. MIDAZOLAM [Suspect]
     Active Substance: MIDAZOLAM
     Indication: Status epilepticus
  5. MIDAZOLAM [Suspect]
     Active Substance: MIDAZOLAM
     Indication: Off label use
  6. FOSPHENYTOIN [Suspect]
     Active Substance: FOSPHENYTOIN
     Indication: Seizure
  7. FOSPHENYTOIN [Suspect]
     Active Substance: FOSPHENYTOIN
     Indication: Status epilepticus
  8. PHENOBARBITAL [Suspect]
     Active Substance: PHENOBARBITAL
     Indication: Seizure
  9. PHENOBARBITAL [Suspect]
     Active Substance: PHENOBARBITAL
     Indication: Status epilepticus
  10. PHENOBARBITAL [Suspect]
     Active Substance: PHENOBARBITAL
  11. PHENOBARBITAL [Suspect]
     Active Substance: PHENOBARBITAL
  12. PHENOBARBITAL [Suspect]
     Active Substance: PHENOBARBITAL
  13. PHENOBARBITAL [Suspect]
     Active Substance: PHENOBARBITAL
  14. PROPOFOL [Suspect]
     Active Substance: PROPOFOL
     Indication: Status epilepticus
  15. VALPROATE [Suspect]
     Active Substance: VALPROIC ACID
     Indication: Status epilepticus
  16. TOPIRAMATE [Suspect]
     Active Substance: TOPIRAMATE
     Indication: Status epilepticus
  17. OXCARBAZEPINE [Suspect]
     Active Substance: OXCARBAZEPINE
     Indication: Status epilepticus
     Dosage: 1200 MILLIGRAM, 2X/DAY (BID) (MAXIMUM 1200 MG B.I.D.)
  18. GABAPENTIN [Suspect]
     Active Substance: GABAPENTIN
     Indication: Status epilepticus
     Dosage: 1200 MILLIGRAM, 3X/DAY (TID) (MAXIMUM 1200 MG T.I.D.)
  19. IMMUNE GLOBULIN NOS [Suspect]
     Active Substance: IMMUNE GLOBULIN NOS
     Indication: Status epilepticus
     Route: 042
  20. ACETAZOLAMIDE [Suspect]
     Active Substance: ACETAZOLAMIDE
     Indication: Status epilepticus
     Dosage: 500 MILLIGRAM, 2X/DAY (BID) (MAXIMUM DOSE OF 500 MG B.I.D.)
  21. CORTICOTROPIN [Suspect]
     Active Substance: CORTICOTROPIN
     Indication: Status epilepticus

REACTIONS (3)
  - Multiple-drug resistance [Unknown]
  - Off label use [Unknown]
  - Prescribed overdose [Unknown]
